FAERS Safety Report 8192978 (Version 4)
Quarter: 2013Q4

REPORT INFORMATION
  Report Type: Spontaneous
  Country: JP (occurrence: JP)
  Receive Date: 20111021
  Receipt Date: 20131111
  Transmission Date: 20140711
  Serious: Yes (Life-Threatening, Hospitalization)
  Sender: FDA-Public Use
  Company Number: PHHY2011JP90820

PATIENT
  Age: 57 Year
  Sex: Male
  Weight: 59 kg

DRUGS (3)
  1. EXELON PATCH [Suspect]
     Indication: DEMENTIA ALZHEIMER^S TYPE
     Dosage: 4.5 MG, DAILY
     Route: 062
     Dates: start: 20110825, end: 20110921
  2. EXELON PATCH [Suspect]
     Dosage: 9 MG, DAILY
     Route: 062
     Dates: start: 20110922
  3. EXELON PATCH [Suspect]
     Dosage: 4.5 MG, DAILY
     Dates: end: 20111006

REACTIONS (9)
  - Interstitial lung disease [Recovering/Resolving]
  - Cough [Recovering/Resolving]
  - Dyspnoea [Recovered/Resolved]
  - Respiratory disorder [Unknown]
  - White blood cell count increased [Unknown]
  - Cell marker increased [Unknown]
  - Nasopharyngitis [Unknown]
  - Feeling abnormal [Recovering/Resolving]
  - Nausea [Recovering/Resolving]
